FAERS Safety Report 7541951-9 (Version None)
Quarter: 2011Q2

REPORT INFORMATION
  Report Type: 
  Country: None (occurrence: None)
  Receive Date: 20110524
  Receipt Date: 20110314
  Transmission Date: 20111010
  Serious: No
  Sender: FDA-Public Use
  Company Number: 029211

PATIENT
  Age: 61 Year
  Sex: Female

DRUGS (1)
  1. CIMZIA [Suspect]
     Dosage: (200 MG 1X/2 WEEKS SUBCUTANEOUS)
     Route: 058

REACTIONS (2)
  - ROSACEA [None]
  - ALOPECIA [None]
